FAERS Safety Report 11269989 (Version 2)
Quarter: 2015Q3

REPORT INFORMATION
  Report Type: Spontaneous
  Country: FR (occurrence: FR)
  Receive Date: 20150714
  Receipt Date: 20150721
  Transmission Date: 20151125
  Serious: Yes (Other)
  Sender: FDA-Public Use
  Company Number: FR-PFIZER INC-2015226596

PATIENT
  Age: 26 Year
  Sex: Female

DRUGS (2)
  1. CYTOTEC [Suspect]
     Active Substance: MISOPROSTOL
     Indication: ABORTION INDUCED
     Dosage: 400 ?G, UNK
     Route: 048
     Dates: start: 2012, end: 2012
  2. MIFEGYNE [Suspect]
     Active Substance: MIFEPRISTONE
     Indication: ABORTION INDUCED
     Dosage: 200 MG, UNK
     Route: 048
     Dates: start: 2012, end: 2012

REACTIONS (3)
  - Drug ineffective for unapproved indication [Unknown]
  - Induced abortion failed [Recovered/Resolved with Sequelae]
  - Polyhydramnios [Unknown]

NARRATIVE: CASE EVENT DATE: 2012
